FAERS Safety Report 5124245-0 (Version None)
Quarter: 2006Q4

REPORT INFORMATION
  Report Type: 
  Country: None (occurrence: None)
  Receive Date: 20061010
  Receipt Date: 20061003
  Transmission Date: 20070319
  Serious: Yes (Hospitalization)
  Sender: FDA-Public Use
  Company Number: FR-BRISTOL-MYERS SQUIBB COMPANY-13530563

PATIENT
  Age: 4 Year
  Sex: Female

DRUGS (1)
  1. ETOPOPHOS [Suspect]
     Indication: EWING'S SARCOMA
     Route: 042
     Dates: start: 20060821, end: 20060823

REACTIONS (2)
  - DERMATITIS EXFOLIATIVE [None]
  - OEDEMA PERIPHERAL [None]
